FAERS Safety Report 9967469 (Version 1)
Quarter: 2014Q1

REPORT INFORMATION
  Report Type: Report from Study
  Country: US (occurrence: US)
  Receive Date: 20140305
  Receipt Date: 20140305
  Transmission Date: 20141002
  Serious: No
  Sender: FDA-Public Use
  Company Number: US-ABBVIE-13P-163-1138850-00

PATIENT
  Age: 41 Year
  Sex: Male

DRUGS (13)
  1. HUMIRA [Suspect]
     Indication: PSORIASIS
     Dosage: DAY 1
     Dates: start: 20130606
  2. HUMIRA [Suspect]
  3. HUMIRA [Suspect]
  4. ZOLOFT [Concomitant]
     Indication: BIPOLAR DISORDER
     Dosage: 100 MG DAILY
  5. ZOLOFT [Concomitant]
     Indication: SCHIZOPHRENIA
  6. LAMICTAL [Concomitant]
     Indication: BIPOLAR DISORDER
  7. LITHIUM [Concomitant]
     Indication: BIPOLAR DISORDER
  8. GEODON [Concomitant]
     Indication: SCHIZOPHRENIA
  9. WELLBUTRIN [Concomitant]
     Indication: DEPRESSION
  10. TRAZODONE [Concomitant]
     Indication: DEPRESSION
  11. FLOMAX [Concomitant]
     Indication: URINARY INCONTINENCE
  12. EXCEDRIN [Concomitant]
     Indication: HEADACHE
  13. NAPROSYN [Concomitant]
     Indication: PAIN

REACTIONS (8)
  - Fatigue [Not Recovered/Not Resolved]
  - Fatigue [Not Recovered/Not Resolved]
  - Injection site pain [Not Recovered/Not Resolved]
  - Insomnia [Not Recovered/Not Resolved]
  - Lymphadenopathy [Not Recovered/Not Resolved]
  - Dysphagia [Not Recovered/Not Resolved]
  - Incorrect dose administered [Unknown]
  - Injection site extravasation [Unknown]
